FAERS Safety Report 5421884-4 (Version None)
Quarter: 2007Q3

REPORT INFORMATION
  Report Type: 
  Country: None (occurrence: None)
  Receive Date: 20070817
  Receipt Date: 20070801
  Transmission Date: 20080115
  Serious: Yes (Life-Threatening, Hospitalization)
  Sender: FDA-Public Use
  Company Number: A-CH2007-16755

PATIENT
  Age: 71 Year
  Sex: Male
  Weight: 81.6 kg

DRUGS (5)
  1. TRACLEER [Suspect]
     Indication: PULMONARY HYPERTENSION
     Dosage: 125 MG, BID, ORAL; 62.5 MG, BID, ORAL; 125 MG, BID, ORAL
     Route: 048
     Dates: start: 20060817, end: 20060914
  2. TRACLEER [Suspect]
     Indication: PULMONARY HYPERTENSION
     Dosage: 125 MG, BID, ORAL; 62.5 MG, BID, ORAL; 125 MG, BID, ORAL
     Route: 048
     Dates: start: 20060915, end: 20070207
  3. TRACLEER [Suspect]
     Indication: PULMONARY HYPERTENSION
     Dosage: 125 MG, BID, ORAL; 62.5 MG, BID, ORAL; 125 MG, BID, ORAL
     Route: 048
     Dates: start: 20070222, end: 20070507
  4. ESOMEPRAZOLE (ESOMEPRAZOLE) [Concomitant]
  5. LIPITOR [Concomitant]

REACTIONS (30)
  - AORTIC ARTERIOSCLEROSIS [None]
  - AORTIC VALVE STENOSIS [None]
  - ATRIAL FLUTTER [None]
  - ATRIOVENTRICULAR BLOCK FIRST DEGREE [None]
  - CARDIAC ARREST [None]
  - CARDIAC FAILURE [None]
  - DILATATION VENTRICULAR [None]
  - DYSPNOEA [None]
  - ELECTROCARDIOGRAM ABNORMAL [None]
  - FACE INJURY [None]
  - FALL [None]
  - FATIGUE [None]
  - FLUID RETENTION [None]
  - INFECTION [None]
  - LEFT VENTRICULAR FAILURE [None]
  - LETHARGY [None]
  - LOCALISED OEDEMA [None]
  - MALAISE [None]
  - OEDEMA PERIPHERAL [None]
  - OXYGEN SATURATION DECREASED [None]
  - PERICARDIAL EFFUSION [None]
  - PLEURAL EFFUSION [None]
  - PNEUMONIA ASPIRATION [None]
  - RENAL IMPAIRMENT [None]
  - RIGHT VENTRICULAR DYSFUNCTION [None]
  - SCROTAL OEDEMA [None]
  - SINUS BRADYCARDIA [None]
  - SYNCOPE [None]
  - TACHYARRHYTHMIA [None]
  - VENTRICULAR TACHYCARDIA [None]
